FAERS Safety Report 4559212-9 (Version None)
Quarter: 2005Q1

REPORT INFORMATION
  Report Type: 
  Country: None (occurrence: None)
  Receive Date: 20050121
  Receipt Date: 20050121
  Transmission Date: 20050727
  Serious: Yes (Life-Threatening)
  Sender: FDA-Public Use
  Company Number: None

PATIENT
  Age: 78 Year
  Sex: Female
  Weight: 90.7194 kg

DRUGS (1)
  1. INFUVITE ADULT [Suspect]
     Indication: SHORT-BOWEL SYNDROME
     Dosage: 10ML PER BAG    DAILY    INTRAVENOU
     Route: 042
     Dates: start: 20050115, end: 20050115

REACTIONS (3)
  - DYSPHAGIA [None]
  - INFUSION RELATED REACTION [None]
  - PRURITUS [None]
